FAERS Safety Report 19486404 (Version 2)
Quarter: 2021Q3

REPORT INFORMATION
  Report Type: Spontaneous
  Country: US (occurrence: US)
  Receive Date: 20210702
  Receipt Date: 20210716
  Transmission Date: 20211014
  Serious: Yes (Life-Threatening, Other)
  Sender: FDA-Public Use
  Company Number: US-ASTRAZENECA-2021A576788

PATIENT
  Weight: 45.4 kg

DRUGS (2)
  1. DEPAKOTE [Concomitant]
     Active Substance: DIVALPROEX SODIUM
     Indication: BIPOLAR DISORDER
     Dosage: ONE HALF TEASPOON TWO TIMES A DAY
     Dates: start: 202105
  2. SEROQUEL [Suspect]
     Active Substance: QUETIAPINE FUMARATE
     Indication: BIPOLAR DISORDER
     Dosage: 200 ? 400 MG, DAILY
     Route: 048

REACTIONS (14)
  - Fall [Unknown]
  - Neck injury [Unknown]
  - Skull fracture [Unknown]
  - Haemorrhage intracranial [Unknown]
  - Cranial nerve injury [Unknown]
  - Drug intolerance [Unknown]
  - Weight decreased [Unknown]
  - Amyotrophic lateral sclerosis [Unknown]
  - Pain [Unknown]
  - Dysphagia [Recovering/Resolving]
  - Pharyngitis [Unknown]
  - Cough [Unknown]
  - Pneumonia [Unknown]
  - Respiratory distress [Unknown]
